FAERS Safety Report 5535462-X (Version None)
Quarter: 2007Q4

REPORT INFORMATION
  Report Type: 
  Country: None (occurrence: None)
  Receive Date: 20071206
  Receipt Date: 20071129
  Transmission Date: 20080405
  Serious: Yes (Death, Hospitalization)
  Sender: FDA-Public Use
  Company Number: FR-WYE-H01505507

PATIENT
  Sex: Male

DRUGS (4)
  1. CORDARONE [Suspect]
     Route: 048
     Dates: end: 20071005
  2. RAMIPRIL [Suspect]
     Route: 048
     Dates: end: 20070915
  3. ZOCOR [Suspect]
     Route: 048
     Dates: end: 20070920
  4. KARDEGIC [Suspect]
     Route: 048
     Dates: end: 20070915

REACTIONS (4)
  - DEATH [None]
  - EPISTAXIS [None]
  - PNEUMONITIS [None]
  - THROMBOCYTOPENIA [None]
